FAERS Safety Report 6787447-3 (Version None)
Quarter: 2010Q2

REPORT INFORMATION
  Report Type: 
  Country: None (occurrence: None)
  Receive Date: 20100623
  Receipt Date: 20070522
  Transmission Date: 20101027
  Serious: No
  Sender: FDA-Public Use
  Company Number: US-PFIZER INC-2007003068

PATIENT
  Sex: Female
  Weight: 56.7 kg

DRUGS (3)
  1. DEPO-PROVERA SUSPENSION/INJ [Suspect]
     Indication: CONTRACEPTION
     Route: 030
     Dates: start: 20061016, end: 20061016
  2. DEPO-PROVERA SUSPENSION/INJ [Suspect]
     Indication: AFFECT LABILITY
  3. ORTHO TRI-CYCLEN [Concomitant]

REACTIONS (3)
  - MENORRHAGIA [None]
  - SINUSITIS [None]
  - THROAT IRRITATION [None]
